FAERS Safety Report 6801046-6 (Version None)
Quarter: 2010Q2

REPORT INFORMATION
  Report Type: 
  Country: None (occurrence: None)
  Receive Date: 20100629
  Receipt Date: 20100616
  Transmission Date: 20101027
  Serious: Yes (Other)
  Sender: FDA-Public Use
  Company Number: US-ELI_LILLY_AND_COMPANY-US201006005667

PATIENT
  Age: 83 Year
  Sex: Female

DRUGS (2)
  1. CYMBALTA [Suspect]
     Dosage: 60 MG, UNKNOWN
  2. LEVAQUIN [Concomitant]
     Indication: URINARY TRACT INFECTION

REACTIONS (3)
  - HEPATIC ENZYME INCREASED [None]
  - JAUNDICE [None]
  - URINARY TRACT INFECTION [None]
